FAERS Safety Report 6566203-5 (Version None)
Quarter: 2010Q1

REPORT INFORMATION
  Report Type: 
  Country: None (occurrence: None)
  Receive Date: 20100202
  Receipt Date: 20100121
  Transmission Date: 20100710
  Serious: Yes (Life-Threatening, Hospitalization)
  Sender: FDA-Public Use
  Company Number: SE-PFIZER INC-2009306025

PATIENT
  Sex: Female
  Weight: 62 kg

DRUGS (11)
  1. DOCETAXEL [Suspect]
     Indication: BREAST CANCER
     Dosage: 125 MG, EVERY 3 WEEKS
     Route: 042
     Dates: start: 20081216, end: 20091120
  2. SUNITINIB MALATE [Suspect]
     Indication: BREAST CANCER
     Dosage: 25 MG, 1X/DAY
     Route: 048
     Dates: start: 20081217, end: 20091201
  3. OMEPRAZOL [Concomitant]
     Indication: GASTRITIS
     Dosage: 20 MG, AS NEEDED
     Dates: start: 20090129
  4. NEULASTA [Concomitant]
     Indication: PROPHYLAXIS
     Dosage: 6 MG, ADMINISTERED DAY 2 AFTER EACH CHEMOTHERAPY COURSE
     Dates: start: 20081121, end: 20091121
  5. BETAPRED [Concomitant]
     Indication: PREMEDICATION
     Dosage: 8 MG, IN RELATION TO EACH CHEMOTHERAPY COURSE
     Dates: start: 20081119, end: 20091121
  6. IRON [Concomitant]
     Indication: HAEMOGLOBIN DECREASED
     Dosage: 100 MG, 2X/DAY
     Dates: start: 20091119
  7. FUROSEMID [Concomitant]
     Indication: FACE OEDEMA
     Dosage: 40 MG, AS NEEDED
     Dates: start: 20090916
  8. KALIUMKLORID [Concomitant]
     Indication: FACE OEDEMA
     Dosage: 750 MG, AS NEEDED
     Dates: start: 20090916
  9. STILNOCT [Concomitant]
     Indication: INSOMNIA
     Dosage: 10 MG, AS NEEDED
     Dates: start: 20091119
  10. FLUOXETINE [Concomitant]
     Indication: DEPRESSION
     Dosage: 20 MG, AS NEEDED
  11. SENSAVAL [Concomitant]
     Indication: DEPRESSION
     Dosage: UNK

REACTIONS (2)
  - GENERAL PHYSICAL HEALTH DETERIORATION [None]
  - RESPIRATORY FAILURE [None]
